FAERS Safety Report 4641405-3 (Version None)
Quarter: 2005Q2

REPORT INFORMATION
  Report Type: 
  Country: None (occurrence: None)
  Receive Date: 20050421
  Receipt Date: 20050210
  Transmission Date: 20051028
  Serious: Yes (Disabling)
  Sender: FDA-Public Use
  Company Number: US-BRISTOL-MYERS SQUIBB COMPANY-12857843

PATIENT
  Age: 83 Year
  Sex: Female
  Weight: 67 kg

DRUGS (13)
  1. KENALOG-40 [Suspect]
     Indication: BACK PAIN
     Dosage: 6CC OF KENALOG 40 30-JUN-04; 06-JUL-04 3CC; 05-AUG-04 120MG TOTAL; 09-SEP-04 20MG OF KENALOG 40;
     Route: 051
     Dates: start: 20040630, end: 20041201
  2. KENALOG-40 [Suspect]
     Indication: SPINAL COLUMN STENOSIS
     Dosage: 6CC OF KENALOG 40 30-JUN-04; 06-JUL-04 3CC; 05-AUG-04 120MG TOTAL; 09-SEP-04 20MG OF KENALOG 40;
     Route: 051
     Dates: start: 20040630, end: 20041201
  3. LIDOCAINE [Concomitant]
     Dosage: 2% ON 30-JUN-04. 1% 06-JUL-04. 1% 05-AUG-04.
     Route: 051
  4. SODIUM CHLORIDE [Concomitant]
     Dosage: 06-JUL-04 AND 05-AUG-04 MIXED WITH LIDOCAINE AND KENALOG
     Route: 051
  5. BUPIVACAINE [Concomitant]
     Dosage: 0.5%
     Route: 051
     Dates: start: 20040909
  6. CRESTOR [Concomitant]
  7. ACETYL SALICYLIC ACID USP BAT [Concomitant]
  8. LEVOTHROID [Concomitant]
  9. ALTACE [Concomitant]
  10. HYDROCHLOROTHIAZIDE [Concomitant]
  11. FOLGARD [Concomitant]
  12. AMIODARONE [Concomitant]
  13. LOVASTATIN [Concomitant]

REACTIONS (2)
  - ALOPECIA EFFLUVIUM [None]
  - HYPOTRICHOSIS [None]
